APPROVED DRUG PRODUCT: METHIMAZOLE
Active Ingredient: METHIMAZOLE
Strength: 10MG
Dosage Form/Route: TABLET;ORAL
Application: A218830 | Product #002 | TE Code: AB
Applicant: SQUARE PHARMACEUTICALS PLC
Approved: Feb 5, 2025 | RLD: No | RS: No | Type: RX